FAERS Safety Report 24624784 (Version 1)
Quarter: 2024Q4

REPORT INFORMATION
  Report Type: Spontaneous
  Country: US (occurrence: US)
  Receive Date: 20241115
  Receipt Date: 20241115
  Transmission Date: 20250114
  Serious: No
  Sender: BAYER HEALTHCARE PHARMACEUTICALS INC.
  Company Number: US-BAYER-2024A160785

PATIENT
  Sex: Female

DRUGS (6)
  1. BETASERON [Suspect]
     Active Substance: INTERFERON BETA-1B
     Indication: Product used for unknown indication
  2. KESIMPTA [Suspect]
     Active Substance: OFATUMUMAB
     Indication: Product used for unknown indication
  3. EXTAVIA [Concomitant]
     Active Substance: INTERFERON BETA-1B
     Dosage: UNK
  4. EXTAVIA [Concomitant]
     Active Substance: INTERFERON BETA-1B
     Dosage: UNK
  5. EXTAVIA [Concomitant]
     Active Substance: INTERFERON BETA-1B
     Dosage: UNK
  6. KESIMPTA [Concomitant]
     Active Substance: OFATUMUMAB

REACTIONS (3)
  - Asthenia [Unknown]
  - Drug ineffective [Unknown]
  - Sleep disorder [Unknown]
